FAERS Safety Report 9281354 (Version 1)
Quarter: 2013Q2

REPORT INFORMATION
  Report Type: Spontaneous
  Country: SK (occurrence: SK)
  Receive Date: 20130509
  Receipt Date: 20130509
  Transmission Date: 20140414
  Serious: Yes (Hospitalization)
  Sender: FDA-Public Use
  Company Number: SK-TEVA-401881ISR

PATIENT
  Age: 77 Year
  Sex: Male

DRUGS (1)
  1. ATORVASTATIN [Suspect]

REACTIONS (2)
  - Myopathy [Recovered/Resolved]
  - Adenocarcinoma of colon [Unknown]
